FAERS Safety Report 24618363 (Version 1)
Quarter: 2024Q4

REPORT INFORMATION
  Report Type: Spontaneous
  Country: US (occurrence: None)
  Receive Date: 20241113
  Receipt Date: 20241113
  Transmission Date: 20250114
  Serious: Yes (Hospitalization)
  Sender: Public
  Company Number: None

PATIENT
  Age: 39 Year
  Sex: Male

DRUGS (1)
  1. SULFAMETHOXAZOLE AND TRIMETHOPRIM [Suspect]
     Active Substance: SULFAMETHOXAZOLE\TRIMETHOPRIM
     Indication: Infection

REACTIONS (4)
  - Drug reaction with eosinophilia and systemic symptoms [None]
  - Anal abscess [None]
  - Haematuria [None]
  - Acute kidney injury [None]

NARRATIVE: CASE EVENT DATE: 20240923
